FAERS Safety Report 10075830 (Version 1)
Quarter: 2014Q2

REPORT INFORMATION
  Report Type: Spontaneous
  Country: DE (occurrence: DE)
  Receive Date: 20140414
  Receipt Date: 20140414
  Transmission Date: 20141212
  Serious: Yes (Other)
  Sender: FDA-Public Use
  Company Number: DE-009507513-1404DEU006376

PATIENT
  Age: 30 Year
  Sex: Female

DRUGS (2)
  1. IMPLANON NXT [Suspect]
     Indication: CONTRACEPTION
     Dosage: ROD
     Route: 059
     Dates: start: 201205
  2. IMPLANON NXT [Suspect]
     Dosage: ROD
     Route: 059

REACTIONS (3)
  - Abortion spontaneous [Unknown]
  - Unintended pregnancy [Recovered/Resolved]
  - Device kink [Unknown]
